FAERS Safety Report 9988940 (Version 2)
Quarter: 2014Q1

REPORT INFORMATION
  Report Type: Report from Study
  Country: US (occurrence: US)
  Receive Date: 20140310
  Receipt Date: 20140310
  Transmission Date: 20141002
  Serious: Yes (Hospitalization)
  Sender: FDA-Public Use
  Company Number: US-ABBVIE-13P-163-1096462-00

PATIENT
  Age: 81 Year
  Sex: Female
  Weight: 52.21 kg

DRUGS (2)
  1. HUMIRA [Suspect]
     Indication: PSORIASIS
     Dates: start: 20130301
  2. HUMIRA [Suspect]
     Dates: start: 20130715

REACTIONS (4)
  - Urinary tract infection [Recovering/Resolving]
  - Fall [Recovered/Resolved]
  - Sinusitis [Recovering/Resolving]
  - Nasal discharge discolouration [Unknown]
